FAERS Safety Report 16678817 (Version 1)
Quarter: 2019Q3

REPORT INFORMATION
  Report Type: Spontaneous
  Country: US (occurrence: US)
  Receive Date: 20190807
  Receipt Date: 20190807
  Transmission Date: 20191004
  Serious: No
  Sender: FDA-Public Use
  Company Number: US-HORIZON-DUE-0454-2019

PATIENT
  Age: 50 Year
  Sex: Female

DRUGS (3)
  1. MOBIC [Concomitant]
     Active Substance: MELOXICAM
  2. DUEXIS [Suspect]
     Active Substance: FAMOTIDINE\IBUPROFEN
     Indication: OSTEOARTHRITIS
     Dosage: 1 TAB TID
     Route: 048
     Dates: start: 201905, end: 201907
  3. PRILOSEC [Concomitant]
     Active Substance: OMEPRAZOLE MAGNESIUM

REACTIONS (4)
  - Cortisol decreased [Unknown]
  - Adrenal disorder [Unknown]
  - Therapy cessation [Unknown]
  - Product supply issue [Unknown]

NARRATIVE: CASE EVENT DATE: 2019
